FAERS Safety Report 6456654-1 (Version None)
Quarter: 2009Q4

REPORT INFORMATION
  Report Type: 
  Country: None (occurrence: None)
  Receive Date: 20091125
  Receipt Date: 20091119
  Transmission Date: 20100525
  Serious: Yes (Death, Hospitalization)
  Sender: FDA-Public Use
  Company Number: CH-ELI_LILLY_AND_COMPANY-CH200903005045

PATIENT
  Age: 63 Year
  Sex: Male
  Weight: 71 kg

DRUGS (11)
  1. ALIMTA [Suspect]
     Dosage: 900 MG, UNKNOWN
     Route: 042
     Dates: start: 20081212
  2. ALIMTA [Suspect]
     Dosage: 900 MG, UNK
     Route: 042
     Dates: start: 20090105
  3. ALIMTA [Suspect]
     Dosage: 900 MG, UNK
     Route: 042
     Dates: start: 20090127
  4. CREON [Concomitant]
     Indication: PANCREATIC INSUFFICIENCY
     Dosage: 1 D/F, 4/D
     Route: 048
     Dates: start: 20080122
  5. DEURSIL [Concomitant]
     Indication: DYSPEPSIA
     Dosage: 3 D/F, DAILY (1/D)
     Route: 048
     Dates: start: 20080722
  6. REMERON [Concomitant]
     Indication: DEPRESSION
     Dosage: 30 MG, DAILY (1/D)
     Route: 048
     Dates: start: 20080122
  7. TRANSIPEG [Concomitant]
     Indication: CONSTIPATION
     Dosage: 1 D/F, DAILY (1/D)
     Route: 048
     Dates: start: 20080122
  8. GLUCOPHAGE [Concomitant]
     Indication: DIABETES MELLITUS
     Dosage: 3 D/F, DAILY (1/D)
     Route: 048
     Dates: start: 20080828
  9. LIMBITROL [Concomitant]
     Indication: DEPRESSION
     Dosage: UNK, DAILY (1/D)
     Route: 048
     Dates: start: 20080722
  10. FOLIC ACID [Concomitant]
     Dates: start: 20081201
  11. VITAMIN B-12 [Concomitant]
     Dates: start: 20081201

REACTIONS (1)
  - PNEUMONITIS [None]
